FAERS Safety Report 10048483 (Version 1)
Quarter: 2014Q1

REPORT INFORMATION
  Report Type: Spontaneous
  Country: US (occurrence: None)
  Receive Date: 20140306
  Receipt Date: 20140306
  Transmission Date: 20141002
  Serious: Yes (Other)
  Sender: FDA-Public Use
  Company Number: 163-21880-13013673

PATIENT
  Age: 60 Year
  Sex: Female
  Weight: 99.8 kg

DRUGS (16)
  1. REVLIMID [Suspect]
     Indication: PLASMA CELL MYELOMA
     Route: 048
     Dates: start: 201111
  2. MAGNESIUM (MAGNESIUM) (TABLETS) [Concomitant]
  3. AMLODIPINE BESYLATE (AMLODIPINE BESILATE) (TABLETS) [Concomitant]
  4. ROPINIROLE HCL (ROPINIROLE HYDROCHLORIDE) (TABLETS) [Concomitant]
  5. METFORMIN HCL (METFORMIN HYDROCHLORIDE) (TABLETS) [Concomitant]
  6. LISINOPRIL (LISINOPRIL) (TABLETS) [Concomitant]
  7. VALTREX (VALACICLOVIR HYDROCHLORIDE) (CAPSULES) [Concomitant]
  8. LEVOTHYROXINE (LEVOTHYROXINE) (TABLETS) [Concomitant]
  9. FLUTICASONE (FLUTICASONE) (SPRAY) [Concomitant]
  10. LIPITOR (ATORVASTATIN) (TABLETS) [Concomitant]
  11. VAGIFEM (ESTRADIOL) (TABLETS) [Concomitant]
  12. ASPIRIN (ACETYLSALICYLIC ACID) (TABLETS) [Concomitant]
  13. ALEVE (NAPROXEN SODIUM) (CAPSULES) [Concomitant]
  14. PANTOPRAZOLE SODIUM (PANTOPRAZOLE SODIUM) (TABLETS) [Concomitant]
  15. LOMOTIL (LOMOTIL) (TABLETS) [Concomitant]
  16. LITHIUM (LITHIUM) (TABLETS) [Concomitant]

REACTIONS (3)
  - Diarrhoea [None]
  - Hypomagnesaemia [None]
  - Drug dose omission [None]
